FAERS Safety Report 7930577-0 (Version None)
Quarter: 2011Q4

REPORT INFORMATION
  Report Type: 
  Country: None (occurrence: None)
  Receive Date: 20111121
  Receipt Date: 20111109
  Transmission Date: 20120403
  Serious: No
  Sender: FDA-Public Use
  Company Number: US-B.I. PHARMACEUTICALS,INC./RIDGEFIELD-2011-BP-25913BP

PATIENT
  Sex: Female

DRUGS (7)
  1. SIMVASTATIN [Concomitant]
     Dosage: 20 MG
     Route: 048
  2. VITAMIN D [Concomitant]
     Dosage: 4000 U
     Route: 048
  3. GLUCOSAMINE CHONDROITIN [Concomitant]
     Route: 048
  4. MAGNESIUM [Concomitant]
     Dosage: 400 MG
     Route: 048
  5. PRADAXA [Suspect]
     Indication: ATRIAL FIBRILLATION
     Dosage: 300 MG
     Route: 048
     Dates: start: 20110801
  6. HYZAAR [Concomitant]
     Dosage: 12.5 MG
     Route: 048
  7. VERAPAMIL [Concomitant]
     Dosage: 120 MG
     Route: 048
     Dates: start: 20110801

REACTIONS (2)
  - HEART RATE INCREASED [None]
  - FATIGUE [None]
